FAERS Safety Report 18712143 (Version 3)
Quarter: 2021Q2

REPORT INFORMATION
  Report Type: Report from Study
  Country: JP (occurrence: JP)
  Receive Date: 20210107
  Receipt Date: 20210408
  Transmission Date: 20210717
  Serious: No
  Sender: FDA-Public Use
  Company Number: JP-PFIZER INC-2019383109

PATIENT
  Age: 63 Year
  Sex: Male
  Weight: 50 kg

DRUGS (9)
  1. PIMOBENDAN [Concomitant]
     Active Substance: PIMOBENDAN
     Indication: CARDIAC FAILURE
     Dosage: 1.25 MG, 2X/DAY
     Route: 048
     Dates: start: 20180124, end: 20200826
  2. AZOSEMIDE [Concomitant]
     Active Substance: AZOSEMIDE
     Indication: CARDIAC FAILURE
     Dosage: 30 MG, 1X/DAY
     Route: 048
  3. VYNDAQEL [Suspect]
     Active Substance: TAFAMIDIS MEGLUMINE
     Indication: HEREDITARY NEUROPATHIC AMYLOIDOSIS
     Dosage: 20 MG, 1X/DAY
     Route: 048
     Dates: start: 20170313, end: 20190926
  4. AMIODARONE [AMIODARONE HYDROCHLORIDE] [Concomitant]
     Active Substance: AMIODARONE HYDROCHLORIDE
     Indication: CARDIAC FAILURE
     Dosage: 50 MG, 2X/DAY
     Route: 048
     Dates: start: 20180124, end: 20200624
  5. FEBURIC [Concomitant]
     Active Substance: FEBUXOSTAT
     Dosage: 10 MG, 1X/DAY
     Route: 048
     Dates: start: 20180919
  6. TEPRENONE [Concomitant]
     Active Substance: TEPRENONE
     Dosage: 50 MG, 1X/DAY
     Route: 048
  7. SPIRONOLACTONE. [Concomitant]
     Active Substance: SPIRONOLACTONE
     Dosage: 50 MG, 1X/DAY
     Route: 048
     Dates: start: 20170809, end: 20200729
  8. SAMSCA [Concomitant]
     Active Substance: TOLVAPTAN
     Indication: CARDIAC FAILURE
     Dosage: 15 MG, 1X/DAY
     Route: 048
     Dates: start: 20170809
  9. WARFARIN [Concomitant]
     Active Substance: WARFARIN
     Dosage: 1 MG, 1X/DAY
     Route: 048
     Dates: start: 20180319, end: 20200702

REACTIONS (1)
  - Platelet count decreased [Recovering/Resolving]

NARRATIVE: CASE EVENT DATE: 20190801
